FAERS Safety Report 17536689 (Version 1)
Quarter: 2020Q1

REPORT INFORMATION
  Report Type: Spontaneous
  Country: US (occurrence: US)
  Receive Date: 20200313
  Receipt Date: 20200313
  Transmission Date: 20200409
  Serious: Yes (Life-Threatening)
  Sender: FDA-Public Use
  Company Number: US-009507513-2003USA003519

PATIENT
  Sex: Female

DRUGS (3)
  1. ASMANEX [Suspect]
     Active Substance: MOMETASONE FUROATE
     Indication: ASTHMA
     Dosage: 1 PUFF DAILY
     Route: 055
     Dates: start: 202001
  2. XOLAIR [Concomitant]
     Active Substance: OMALIZUMAB
     Dosage: INJECTIONS, BI-WEEKLY
  3. PROAIR HFA [Concomitant]
     Active Substance: ALBUTEROL SULFATE
     Dosage: UNK, PRN

REACTIONS (5)
  - Adverse event [Unknown]
  - Product quality issue [Unknown]
  - Streptococcal infection [Recovering/Resolving]
  - Poor quality device used [Unknown]
  - Circumstance or information capable of leading to medication error [Not Recovered/Not Resolved]

NARRATIVE: CASE EVENT DATE: 2020
